FAERS Safety Report 12385520 (Version 2)
Quarter: 2016Q2

REPORT INFORMATION
  Report Type: Spontaneous
  Country: JP (occurrence: JP)
  Receive Date: 20160519
  Receipt Date: 20160602
  Transmission Date: 20160815
  Serious: Yes (Hospitalization)
  Sender: FDA-Public Use
  Company Number: JP-ASTRAZENECA-2016SE51981

PATIENT
  Age: 66 Year
  Sex: Male

DRUGS (5)
  1. NEXIUM [Suspect]
     Active Substance: ESOMEPRAZOLE MAGNESIUM
     Dosage: 20.0MG UNKNOWN
     Route: 048
     Dates: start: 20150608, end: 201510
  2. URSO [Concomitant]
     Active Substance: URSODIOL
     Route: 065
  3. JANUVIA [Concomitant]
     Active Substance: SITAGLIPTIN PHOSPHATE
     Route: 065
  4. NEXIUM [Suspect]
     Active Substance: ESOMEPRAZOLE MAGNESIUM
     Dosage: 10.0MG UNKNOWN
     Route: 048
     Dates: start: 201510
  5. FASTIC [Concomitant]
     Active Substance: NATEGLINIDE
     Route: 065

REACTIONS (1)
  - Poisoning [Unknown]
